FAERS Safety Report 4609366-0 (Version None)
Quarter: 2005Q1

REPORT INFORMATION
  Report Type: 
  Country: None (occurrence: None)
  Receive Date: 20050314
  Receipt Date: 20050301
  Transmission Date: 20050727
  Serious: Yes (Hospitalization)
  Sender: FDA-Public Use
  Company Number: 2005039887

PATIENT
  Age: 80 Year
  Sex: Female

DRUGS (5)
  1. MAGNEX (SULBACTAM, CEFOPERAZONE) [Suspect]
     Indication: SEPSIS
     Dosage: 2 GRAM (1 GRAM, 2 IN 1 D), INTRAVENOUS
     Route: 042
     Dates: start: 20050203, end: 20050207
  2. OFLOXACIN [Concomitant]
  3. TINIDAZOLE (TINIDAZOLE) [Concomitant]
  4. HEPARIN-FRACTION, SODIUM SALT (HEPARIN-FRACTION, SODIUM SALT) [Concomitant]
  5. WARFARIN SODIUM [Concomitant]

REACTIONS (2)
  - HAEMOGLOBIN DECREASED [None]
  - PROTHROMBIN TIME PROLONGED [None]
